FAERS Safety Report 5679525-7 (Version None)
Quarter: 2008Q1

REPORT INFORMATION
  Report Type: 
  Country: None (occurrence: None)
  Receive Date: 20080325
  Receipt Date: 20080312
  Transmission Date: 20080703
  Serious: Yes (Death, Other)
  Sender: FDA-Public Use
  Company Number: ZM-BOEHRINGER INGELHEIM GMBH, GERMANY-2008-DE-01576GD

PATIENT

DRUGS (2)
  1. PEDIMUNE [Suspect]
     Indication: HIV INFECTION
     Dosage: DOSING SCHEDULE BY WEIGHT BANDS; STARTED EITHER ON FULL DOSE OR IN A DAILY DOSE ESCALATION SCHEDULE
     Route: 048
  2. PEDIMUNE [Suspect]
     Indication: DRUG LEVEL

REACTIONS (2)
  - BLOOD BILIRUBIN ABNORMAL [None]
  - PNEUMONIA [None]
